FAERS Safety Report 10463475 (Version 4)
Quarter: 2014Q4

REPORT INFORMATION
  Report Type: Spontaneous
  Country: JP (occurrence: JP)
  Receive Date: 20140919
  Receipt Date: 20141105
  Transmission Date: 20150528
  Serious: Yes (Other)
  Sender: FDA-Public Use
  Company Number: JP-BEH-2014045026

PATIENT
  Age: 57 Year
  Sex: Female
  Weight: 44 kg

DRUGS (15)
  1. ABILIFY [Concomitant]
     Active Substance: ARIPIPRAZOLE
     Indication: DEPRESSION
     Route: 048
  2. PREDONINE [Concomitant]
     Active Substance: PREDNISOLONE\PREDNISOLONE ACETATE\PREDNISOLONE SODIUM SUCCINATE
     Indication: SYSTEMIC LUPUS ERYTHEMATOSUS
     Dosage: ONGOING
     Route: 048
     Dates: start: 20120201
  3. KENKETU GLOVENIN-I 2.5G [Concomitant]
     Dates: start: 20131104
  4. IMURAN [Concomitant]
     Active Substance: AZATHIOPRINE
     Indication: SYSTEMIC LUPUS ERYTHEMATOSUS
     Route: 048
  5. PARIET [Concomitant]
     Active Substance: RABEPRAZOLE SODIUM
     Indication: GASTROOESOPHAGEAL REFLUX DISEASE
     Dosage: ONGOING
     Route: 048
     Dates: start: 20120201
  6. FRESH FROZEN PLASMA [Concomitant]
     Active Substance: HUMAN PLASMA
  7. SANGLOPOR IV INFUSION [Suspect]
     Active Substance: HUMAN IMMUNOGLOBULIN G
     Indication: HYPOGAMMAGLOBULINAEMIA
     Dosage: 500 MG / 1 DAY. 100ML/H
     Route: 042
     Dates: start: 20140903, end: 20140903
  8. KEKETU ALBUMIN 25 [Concomitant]
     Indication: PLASMAPHERESIS
     Route: 042
     Dates: start: 20140903
  9. KENKETU GLOVENIN-I 2.5G [Concomitant]
     Dosage: 2.5G X 6
  10. EURODIN [Concomitant]
     Active Substance: ESTAZOLAM
     Indication: INSOMNIA
     Route: 048
  11. KENKETU GLOVENIN-I 2.5G [Concomitant]
     Dates: start: 20140602
  12. SANGLOPOR IV INFUSION [Suspect]
     Active Substance: HUMAN IMMUNOGLOBULIN G
     Route: 041
     Dates: start: 20140903
  13. CORTICOSTEROIDS [Concomitant]
     Active Substance: CORTICOSTEROID NOS
  14. KENKETU GLOVENIN-I 2.5G [Concomitant]
     Dates: start: 20131211
  15. THYRADIN [Concomitant]
     Active Substance: LEVOTHYROXINE
     Indication: HYPOTHYROIDISM
     Route: 048

REACTIONS (17)
  - Device related infection [Unknown]
  - Chills [Recovered/Resolved]
  - Dyspnoea [Recovered/Resolved]
  - C-reactive protein increased [Recovered/Resolved]
  - Sepsis [Unknown]
  - Pyrexia [Recovered/Resolved]
  - Tachycardia [Recovered/Resolved]
  - Flushing [Unknown]
  - Type II hypersensitivity [Unknown]
  - Platelet count decreased [Recovered/Resolved]
  - Oxygen saturation decreased [Recovered/Resolved]
  - Hypertension [Recovered/Resolved]
  - Cyanosis [Recovered/Resolved]
  - Rash [Unknown]
  - White blood cell count increased [Unknown]
  - Procalcitonin increased [Unknown]
  - Angioedema [Unknown]

NARRATIVE: CASE EVENT DATE: 20140903
